FAERS Safety Report 20090479 (Version 1)
Quarter: 2021Q4

REPORT INFORMATION
  Report Type: Spontaneous
  Country: US (occurrence: US)
  Receive Date: 20211119
  Receipt Date: 20211119
  Transmission Date: 20220303
  Serious: No
  Sender: FDA-Public Use
  Company Number: US-TARO-2021TAR00990

PATIENT

DRUGS (3)
  1. MUPIROCIN [Suspect]
     Active Substance: MUPIROCIN
     Indication: Rash pruritic
     Dosage: A LITTLE BIT, LIKE THE SIZE OF A PINKY NAIL SPREAD OVER RIGHT ARM, WHERE THE RASH WAS, TID
     Route: 061
     Dates: start: 20210913, end: 20210914
  2. MUPIROCIN [Suspect]
     Active Substance: MUPIROCIN
     Indication: Infection
  3. VITAMIN B12 [Concomitant]
     Active Substance: CYANOCOBALAMIN
     Indication: Product used for unknown indication
     Dosage: UNK
     Route: 065

REACTIONS (3)
  - Peripheral swelling [Recovered/Resolved]
  - Application site pain [Recovered/Resolved]
  - Application site erythema [Not Recovered/Not Resolved]

NARRATIVE: CASE EVENT DATE: 20210913
